FAERS Safety Report 4609965-6 (Version None)
Quarter: 2005Q1

REPORT INFORMATION
  Report Type: 
  Country: None (occurrence: None)
  Receive Date: 20050316
  Receipt Date: 20050307
  Transmission Date: 20050727
  Serious: Yes (Other)
  Sender: FDA-Public Use
  Company Number: US-MERCK-0503USA00964

PATIENT
  Age: 73 Year
  Sex: Female

DRUGS (3)
  1. HYZAAR [Suspect]
     Indication: HYPERTENSION
     Route: 048
     Dates: start: 20010101, end: 20050101
  2. CELEBREX [Concomitant]
     Indication: PAIN
     Route: 065
  3. ZOCOR [Concomitant]
     Indication: PAIN
     Route: 048

REACTIONS (5)
  - BACK DISORDER [None]
  - BLOOD SODIUM DECREASED [None]
  - NEUROPATHY PERIPHERAL [None]
  - OEDEMA PERIPHERAL [None]
  - PAIN [None]
